FAERS Safety Report 13845265 (Version 2)
Quarter: 2017Q3

REPORT INFORMATION
  Report Type: Spontaneous
  Country: US (occurrence: US)
  Receive Date: 20170808
  Receipt Date: 20170814
  Transmission Date: 20171127
  Serious: Yes (Other)
  Sender: FDA-Public Use
  Company Number: US-PFIZER INC-2017337242

PATIENT
  Age: 34 Year
  Sex: Female

DRUGS (2)
  1. METHOTREXATE SODIUM. [Suspect]
     Active Substance: METHOTREXATE SODIUM
     Indication: RHEUMATOID ARTHRITIS
     Dosage: UNK
  2. MEDROL [Suspect]
     Active Substance: METHYLPREDNISOLONE
     Dosage: 4 MG, UNK

REACTIONS (29)
  - Polyarthritis [Unknown]
  - Ocular hyperaemia [Unknown]
  - Mitral valve prolapse [Unknown]
  - Rash [Unknown]
  - Tenosynovitis [Unknown]
  - Joint stiffness [Unknown]
  - Rhinorrhoea [Unknown]
  - Erythema [Unknown]
  - Photosensitivity reaction [Unknown]
  - Insomnia [Unknown]
  - Fatigue [Unknown]
  - Dry eye [Unknown]
  - Dizziness [Recovered/Resolved]
  - Asthenia [Unknown]
  - Dyspepsia [Unknown]
  - Skin discolouration [Unknown]
  - Sacroiliitis [Unknown]
  - Ligament sprain [Unknown]
  - Peripheral swelling [Unknown]
  - Epistaxis [Unknown]
  - Back pain [Unknown]
  - Eye pruritus [Unknown]
  - Headache [Unknown]
  - Synovitis [Unknown]
  - Joint swelling [Unknown]
  - Eye irritation [Unknown]
  - Stomatitis [Unknown]
  - Radiculitis brachial [Unknown]
  - Arthralgia [Unknown]
